FAERS Safety Report 13695714 (Version 2)
Quarter: 2017Q4

REPORT INFORMATION
  Report Type: Report from Study
  Country: CO (occurrence: CO)
  Receive Date: 20170627
  Receipt Date: 20171017
  Transmission Date: 20180320
  Serious: Yes (Other)
  Sender: FDA-Public Use
  Company Number: CO-REGENERON PHARMACEUTICALS, INC.-2017-17560

PATIENT

DRUGS (7)
  1. EYLEA [Suspect]
     Active Substance: AFLIBERCEPT
     Dosage: 2ND
     Dates: start: 20160606, end: 20160606
  2. EYLEA [Suspect]
     Active Substance: AFLIBERCEPT
     Dosage: 3RD
     Dates: start: 20160706, end: 20160706
  3. EYLEA [Suspect]
     Active Substance: AFLIBERCEPT
     Dosage: 5TH
     Dates: start: 20161001, end: 20161001
  4. EYLEA [Suspect]
     Active Substance: AFLIBERCEPT
     Dosage: 6TH
     Dates: start: 20170511, end: 20170511
  5. EYLEA [Suspect]
     Active Substance: AFLIBERCEPT
     Indication: DIABETIC RETINAL OEDEMA
     Dosage: 2 MG, Q1MON
     Dates: start: 20160511
  6. EYLEA [Suspect]
     Active Substance: AFLIBERCEPT
     Dosage: 4TH
     Dates: start: 20160806, end: 20160806
  7. EYLEA [Suspect]
     Active Substance: AFLIBERCEPT
     Dosage: 1ST
     Dates: start: 20160511, end: 20160511

REACTIONS (5)
  - Inappropriate schedule of drug administration [Not Recovered/Not Resolved]
  - Eye irritation [Not Recovered/Not Resolved]
  - Blindness unilateral [Not Recovered/Not Resolved]
  - Eye pain [Not Recovered/Not Resolved]
  - Eye pruritus [Not Recovered/Not Resolved]

NARRATIVE: CASE EVENT DATE: 20160720
